FAERS Safety Report 18214628 (Version 1)
Quarter: 2020Q3

REPORT INFORMATION
  Report Type: Spontaneous
  Country: US (occurrence: US)
  Receive Date: 20200831
  Receipt Date: 20200831
  Transmission Date: 20201103
  Serious: Yes (Other)
  Sender: FDA-Public Use
  Company Number: US-LANNETT COMPANY, INC.-US-2020LAN000209

PATIENT
  Age: 6 Month
  Sex: Male

DRUGS (1)
  1. FERROUS SULFATE DROPS, 75MG/ML RUGBY [Suspect]
     Active Substance: FERROUS SULFATE
     Indication: ANAEMIA
     Dosage: 1.5 ML, MIXED WITH WATER
     Route: 048
     Dates: start: 20200819, end: 20200820

REACTIONS (5)
  - Infantile spitting up [Unknown]
  - Faeces discoloured [Unknown]
  - Reflux gastritis [Unknown]
  - Irritability [Unknown]
  - Haematochezia [Unknown]

NARRATIVE: CASE EVENT DATE: 20200819
